FAERS Safety Report 6487973-0 (Version None)
Quarter: 2009Q4

REPORT INFORMATION
  Report Type: 
  Country: None (occurrence: None)
  Receive Date: 20091123
  Receipt Date: 20091019
  Transmission Date: 20100525
  Serious: No
  Sender: FDA-Public Use
  Company Number: 8053420

PATIENT
  Age: 41 Year
  Sex: Female
  Weight: 122.7 kg

DRUGS (9)
  1. CIMZIA [Suspect]
     Indication: CROHN'S DISEASE
     Dosage: 400 MG /M SC
     Route: 058
     Dates: start: 20090402
  2. ASACOL [Concomitant]
  3. DESIPRAMINE [Concomitant]
  4. SINGULAIR [Concomitant]
  5. PROVENTIL-HFA [Concomitant]
  6. CELEBREX [Concomitant]
  7. PRILOSEC [Concomitant]
  8. PERCOCET [Concomitant]
  9. ATIVAN [Concomitant]

REACTIONS (2)
  - BRONCHITIS [None]
  - NASOPHARYNGITIS [None]
